FAERS Safety Report 7819119-8 (Version None)
Quarter: 2011Q4

REPORT INFORMATION
  Report Type: 
  Country: None (occurrence: None)
  Receive Date: 20111018
  Receipt Date: 20111013
  Transmission Date: 20120403
  Serious: Yes (Hospitalization)
  Sender: FDA-Public Use
  Company Number: PHHO2011FR17106

PATIENT
  Sex: Female
  Weight: 51 kg

DRUGS (4)
  1. FRAGMIN [Concomitant]
     Indication: THROMBOSIS
     Dosage: UNK
     Route: 058
     Dates: start: 20110504
  2. ZOLEDRONIC [Suspect]
     Indication: METASTASES TO BONE
     Dosage: UNK
     Route: 042
     Dates: start: 20110328, end: 20110923
  3. ZOFRAN [Concomitant]
     Indication: VOMITING
     Dosage: UNK
     Route: 042
     Dates: start: 20110324
  4. METHOTREXATE [Suspect]
     Dosage: UNK
     Route: 042
     Dates: start: 20110926

REACTIONS (3)
  - ASCITES [None]
  - ENCEPHALOPATHY [None]
  - AFFECTIVE DISORDER [None]
